FAERS Safety Report 19770322 (Version 1)
Quarter: 2021Q3

REPORT INFORMATION
  Report Type: Spontaneous
  Country: US (occurrence: US)
  Receive Date: 20210831
  Receipt Date: 20210831
  Transmission Date: 20211014
  Serious: Yes (Death)
  Sender: FDA-Public Use
  Company Number: None

PATIENT
  Sex: Male
  Weight: 82.35 kg

DRUGS (17)
  1. ACETAMINOPHEN. [Concomitant]
     Active Substance: ACETAMINOPHEN
  2. ENOXAPARIN [Concomitant]
     Active Substance: ENOXAPARIN
  3. FAMOTIDINE. [Concomitant]
     Active Substance: FAMOTIDINE
  4. GABAPENTIN. [Concomitant]
     Active Substance: GABAPENTIN
  5. PREDNISONE. [Concomitant]
     Active Substance: PREDNISONE
  6. CYCLOBENAZAPRINE [Concomitant]
  7. POLYETHYLENE GLYCOL [Concomitant]
     Active Substance: POLYETHYLENE GLYCOLS
  8. ATORVASTATIN [Concomitant]
     Active Substance: ATORVASTATIN
  9. DOCUSATE?SENNA [Concomitant]
  10. DOXYCYCLINE. [Concomitant]
     Active Substance: DOXYCYCLINE
  11. IBUPROFEN. [Concomitant]
     Active Substance: IBUPROFEN
  12. METHADONE [Concomitant]
     Active Substance: METHADONE HYDROCHLORIDE
  13. ABIRATERONE ACETATE. [Suspect]
     Active Substance: ABIRATERONE ACETATE
     Indication: PROSTATE CANCER
     Route: 048
  14. CALCIUM CARBONATE. [Concomitant]
     Active Substance: CALCIUM CARBONATE
  15. METOCLOPRAMIDE. [Concomitant]
     Active Substance: METOCLOPRAMIDE
  16. MULTIVITAMIN AND MINERALS [Concomitant]
     Active Substance: MINERALS\VITAMINS
  17. BICALUTAMIDE. [Concomitant]
     Active Substance: BICALUTAMIDE

REACTIONS (1)
  - Death [None]
